FAERS Safety Report 4681128-8 (Version None)
Quarter: 2005Q2

REPORT INFORMATION
  Report Type: 
  Country: None (occurrence: None)
  Receive Date: 20050603
  Receipt Date: 20050530
  Transmission Date: 20051028
  Serious: Yes (Other)
  Sender: FDA-Public Use
  Company Number: US-KINGPHARMUSA00001-K200500732

PATIENT
  Age: 81 Year
  Sex: Female

DRUGS (5)
  1. ALTACE [Suspect]
     Indication: HYPERTENSION
     Dosage: 10 MG, QD
     Route: 048
     Dates: start: 20041117, end: 20041120
  2. METOCARD [Concomitant]
     Indication: MYOCARDIAL ISCHAEMIA
     Dosage: 25 MG, TID
     Route: 048
  3. EFFOX LONG [Concomitant]
     Dosage: 1 UNK, QD
     Route: 048
  4. AMLOPIN [Concomitant]
     Indication: HYPERTENSION
     Dosage: 1 UNK, QD
     Route: 048
  5. HYGROTON [Concomitant]
     Indication: HYPERTENSION
     Dosage: 1 UNK, UNK
     Route: 048

REACTIONS (2)
  - LABILE BLOOD PRESSURE [None]
  - NAUSEA [None]
